FAERS Safety Report 5570279-1 (Version None)
Quarter: 2007Q4

REPORT INFORMATION
  Report Type: 
  Country: None (occurrence: None)
  Receive Date: 20071219
  Receipt Date: 20071219
  Transmission Date: 20080405
  Serious: No
  Sender: FDA-Public Use
  Company Number: None

PATIENT

DRUGS (6)
  1. HYDROXYCHLOROQUINE [Suspect]
     Indication: SJOGREN'S SYNDROME
     Dosage: 200MG PO BID
     Route: 048
     Dates: start: 20070830
  2. RESTASIS [Concomitant]
  3. AVANDAMET [Concomitant]
  4. EVOXAC [Concomitant]
  5. WELLBUTRIN [Concomitant]
  6. TRILEPTAL [Concomitant]

REACTIONS (2)
  - TREMOR [None]
  - VOMITING [None]
